FAERS Safety Report 10906200 (Version 3)
Quarter: 2015Q3

REPORT INFORMATION
  Report Type: Spontaneous
  Country: US (occurrence: US)
  Receive Date: 20150311
  Receipt Date: 20150701
  Transmission Date: 20151125
  Serious: Yes (Hospitalization)
  Sender: FDA-Public Use
  Company Number: US-ACTELION-A-US2015-113654

PATIENT
  Age: 62 Year
  Sex: Female

DRUGS (3)
  1. SILDENAFIL. [Concomitant]
     Active Substance: SILDENAFIL
  2. TRACLEER [Suspect]
     Active Substance: BOSENTAN
     Indication: PULMONARY ARTERIAL HYPERTENSION
     Dosage: UNK
     Route: 048
  3. REMODULIN [Concomitant]
     Active Substance: TREPROSTINIL

REACTIONS (12)
  - Dyspnoea [Unknown]
  - Fatigue [Unknown]
  - Tremor [Unknown]
  - Oxygen saturation decreased [Unknown]
  - Condition aggravated [Unknown]
  - Hypoxia [Unknown]
  - Pain [Unknown]
  - Heart rate increased [Unknown]
  - Dysarthria [Unknown]
  - Hypotension [Unknown]
  - Cyanosis [Unknown]
  - Chills [Unknown]

NARRATIVE: CASE EVENT DATE: 20150624
